FAERS Safety Report 7809437 (Version 2)
Quarter: 2013Q2

REPORT INFORMATION
  Report Type: Report from Study
  Country: MX (occurrence: MX)
  Receive Date: 20110211
  Receipt Date: 20130527
  Transmission Date: 20140414
  Serious: Yes (Hospitalization)
  Sender: FDA-Public Use
  Company Number: PHHY2011MX07630

PATIENT
  Age: 54 Year
  Sex: Male

DRUGS (1)
  1. EXFORGE [Suspect]
     Indication: HYPERTENSION
     Dosage: 1 DF, (160 MG VALS/ 10 MG AMLO) PER DAY
     Route: 048
     Dates: start: 201001

REACTIONS (1)
  - Retinal detachment [Recovered/Resolved]
